FAERS Safety Report 24974889 (Version 1)
Quarter: 2025Q1

REPORT INFORMATION
  Report Type: Spontaneous
  Country: FR (occurrence: None)
  Receive Date: 20250217
  Receipt Date: 20250217
  Transmission Date: 20250408
  Serious: Yes (Other)
  Sender: ORION
  Company Number: None

PATIENT
  Age: 44 Year
  Sex: Female

DRUGS (6)
  1. METHOTREXATE [Suspect]
     Active Substance: METHOTREXATE
     Indication: Ankylosing spondylitis
     Dates: start: 20240101
  2. BETAMETHASONE VALERATE [Suspect]
     Active Substance: BETAMETHASONE VALERATE
     Indication: Mouth ulceration
     Dates: start: 2017
  3. FOLIC ACID [Suspect]
     Active Substance: FOLIC ACID
     Indication: Anaemia prophylaxis
     Dates: start: 20240101
  4. COSENTYX [Suspect]
     Active Substance: SECUKINUMAB
     Indication: Ankylosing spondylitis
     Dosage: STRENGTH: 300 MG
     Dates: start: 20231201, end: 20240301
  5. COSENTYX [Suspect]
     Active Substance: SECUKINUMAB
     Dates: start: 20170201, end: 20231101
  6. PREDNISONE [Suspect]
     Active Substance: PREDNISONE
     Indication: Ankylosing spondylitis

REACTIONS (1)
  - Anogenital lichen planus [Not Recovered/Not Resolved]

NARRATIVE: CASE EVENT DATE: 20240101
